FAERS Safety Report 5638663-5 (Version None)
Quarter: 2008Q1

REPORT INFORMATION
  Report Type: 
  Country: None (occurrence: None)
  Receive Date: 20080221
  Receipt Date: 20080221
  Transmission Date: 20080703
  Serious: Yes (Other)
  Sender: FDA-Public Use
  Company Number: None

PATIENT
  Sex: Female
  Weight: 23.587 kg

DRUGS (2)
  1. FOCALIN XR [Suspect]
     Indication: ATTENTION DEFICIT/HYPERACTIVITY DISORDER
     Dosage: FOCALIN XR 20MG QD PO
     Route: 048
     Dates: start: 20070201, end: 20080110
  2. FOCALIN [Suspect]
     Indication: ATTENTION DEFICIT/HYPERACTIVITY DISORDER
     Dosage: FOCALIN  5MG QD PRN PO
     Route: 048
     Dates: start: 20070201, end: 20080110

REACTIONS (8)
  - ABNORMAL BEHAVIOUR [None]
  - CRYING [None]
  - FRUSTRATION [None]
  - IMPULSIVE BEHAVIOUR [None]
  - IRRITABILITY [None]
  - MOOD ALTERED [None]
  - OBSESSIVE-COMPULSIVE DISORDER [None]
  - SOCIAL AVOIDANT BEHAVIOUR [None]
